FAERS Safety Report 7382648-8 (Version None)
Quarter: 2011Q1

REPORT INFORMATION
  Report Type: 
  Country: None (occurrence: None)
  Receive Date: 20110329
  Receipt Date: 20110324
  Transmission Date: 20110831
  Serious: No
  Sender: FDA-Public Use
  Company Number: US-BAYER-2011-026330

PATIENT
  Sex: Female

DRUGS (3)
  1. LIPITOR [Concomitant]
     Dosage: DAILY DOSE 10 MG
  2. ATENOLOL [Concomitant]
     Dosage: DAILY DOSE 25 MG
  3. AVELOX [Suspect]
     Indication: INFECTION
     Dosage: DAILY DOSE 400 MG
     Route: 048
     Dates: start: 20110322

REACTIONS (1)
  - ADVERSE DRUG REACTION [None]
